FAERS Safety Report 5310937-7 (Version None)
Quarter: 2007Q2

REPORT INFORMATION
  Report Type: 
  Country: None (occurrence: None)
  Receive Date: 20070430
  Receipt Date: 20070420
  Transmission Date: 20071010
  Serious: Yes (Other)
  Sender: FDA-Public Use
  Company Number: US-JNJFOC-20070405165

PATIENT
  Sex: Female
  Weight: 105.69 kg

DRUGS (3)
  1. REMICADE [Suspect]
     Route: 042
     Dates: start: 20061130
  2. REMICADE [Suspect]
     Route: 042
     Dates: start: 20061130
  3. REMICADE [Suspect]
     Indication: TENOSYNOVITIS
     Route: 042
     Dates: start: 20061130

REACTIONS (1)
  - SYSTEMIC LUPUS ERYTHEMATOSUS [None]
